FAERS Safety Report 11684910 (Version 1)
Quarter: 2015Q4

REPORT INFORMATION
  Report Type: Report from Study
  Country: US (occurrence: US)
  Receive Date: 20151030
  Receipt Date: 20151030
  Transmission Date: 20160304
  Serious: Yes (Hospitalization)
  Sender: FDA-Public Use
  Company Number: US-ABBVIE-15K-163-1486442-00

PATIENT
  Age: 66 Year
  Sex: Female

DRUGS (1)
  1. HUMIRA [Suspect]
     Active Substance: ADALIMUMAB
     Indication: PRODUCT USED FOR UNKNOWN INDICATION
     Route: 058
     Dates: end: 201510

REACTIONS (7)
  - Fibromyalgia [Unknown]
  - Oral pustule [Unknown]
  - Pyoderma gangrenosum [Unknown]
  - Viral skin infection [Unknown]
  - Infected varicose vein [Unknown]
  - Drug hypersensitivity [Unknown]
  - Transfusion [Unknown]

NARRATIVE: CASE EVENT DATE: 201510
